FAERS Safety Report 7487273-6 (Version None)
Quarter: 2011Q2

REPORT INFORMATION
  Report Type: 
  Country: None (occurrence: None)
  Receive Date: 20110518
  Receipt Date: 20101220
  Transmission Date: 20111010
  Serious: Yes (Other)
  Sender: FDA-Public Use
  Company Number: US-BAYER-201024820NA

PATIENT
  Age: 20 Year
  Sex: Female
  Weight: 86.168 kg

DRUGS (8)
  1. DROSPIRENONE AND ETHINYL ESTRADIOL [Suspect]
     Indication: ORAL CONTRACEPTION
     Route: 048
  2. ELMIRON [Concomitant]
     Dosage: UNK
     Dates: start: 20080121
  3. DARVOCET-N 50 [Concomitant]
     Dosage: UNK
     Dates: start: 20080121
  4. YASMIN [Suspect]
     Indication: ORAL CONTRACEPTION
     Dosage: UNK
     Route: 048
     Dates: start: 20030201
  5. HYDROXYZINE [Concomitant]
     Dosage: UNK
     Dates: start: 20080121
  6. SARAFEM [Concomitant]
     Dosage: UNK
     Dates: start: 20080121
  7. VITAMINS NOS [Concomitant]
     Dosage: UNK UNK, QD
     Route: 048
  8. LEVONORGESTREL + ETHINYL ESTRADIOL [Concomitant]
     Route: 048

REACTIONS (7)
  - CHOLECYSTITIS CHRONIC [None]
  - GALLBLADDER CHOLESTEROLOSIS [None]
  - POLLAKIURIA [None]
  - CYSTITIS INTERSTITIAL [None]
  - GALLBLADDER DISORDER [None]
  - CHOLECYSTITIS [None]
  - BLADDER PAIN [None]
